FAERS Safety Report 8840549 (Version 1)
Quarter: 2012Q4

REPORT INFORMATION
  Report Type: 
  Country: US (occurrence: US)
  Receive Date: 20121015
  Receipt Date: 20121015
  Transmission Date: 20130627
  Serious: Yes (Hospitalization)
  Sender: FDA-Public Use
  Company Number: US-ELI_LILLY_AND_COMPANY-US201208004476

PATIENT
  Age: 82 Year
  Sex: Female

DRUGS (12)
  1. FORTEO [Suspect]
     Indication: OSTEOPOROSIS
     Dosage: 20 ug, qd
     Dates: start: 20120808, end: 20120810
  2. FORTEO [Suspect]
     Dosage: 20 ug, qd
     Dates: end: 20120907
  3. DIGOXIN [Concomitant]
  4. LOSARTAN [Concomitant]
  5. ATENOLOL [Concomitant]
  6. BABY ASPIRIN [Concomitant]
  7. VITAMIN D3 [Concomitant]
  8. ANTIOXIDANT                        /02147801/ [Concomitant]
  9. FISH OIL [Concomitant]
  10. CALCIUM [Concomitant]
  11. GLUCOSAMINE [Concomitant]
  12. OCTOVIT [Concomitant]

REACTIONS (2)
  - Knee arthroplasty [Unknown]
  - Drug dose omission [Unknown]
